FAERS Safety Report 7543144-8 (Version None)
Quarter: 2011Q2

REPORT INFORMATION
  Report Type: 
  Country: None (occurrence: None)
  Receive Date: 20110613
  Receipt Date: 20110613
  Transmission Date: 20111010
  Serious: Yes (Life-Threatening, Hospitalization)
  Sender: FDA-Public Use
  Company Number: PHHO2008DE12464

PATIENT
  Age: 63 Year
  Sex: Male
  Weight: 71 kg

DRUGS (5)
  1. PLACEBO [Suspect]
     Indication: CHRONIC GRAFT VERSUS HOST DISEASE
     Dosage: 720 MG, BID
     Route: 048
     Dates: start: 20081001, end: 20081016
  2. CYCLOSPORINE [Suspect]
     Dosage: 110 MG, BID
     Route: 048
     Dates: start: 20081001
  3. UDC [Concomitant]
     Indication: HYPERBILIRUBINAEMIA
     Dosage: UNK
  4. PENICILLIN VK [Concomitant]
     Indication: ANTIBIOTIC PROPHYLAXIS
  5. PREDNISONE [Concomitant]
     Indication: GRAFT VERSUS HOST DISEASE
     Dosage: 25 - 75 MG, QD
     Route: 048
     Dates: start: 20081001

REACTIONS (5)
  - PANCREATITIS [None]
  - ENDOSCOPIC RETROGRADE CHOLANGIOPANCREATOGRAPHY [None]
  - ABDOMINAL PAIN [None]
  - CHOLELITHIASIS [None]
  - LIPASE INCREASED [None]
